FAERS Safety Report 21208045 (Version 1)
Quarter: 2022Q3

REPORT INFORMATION
  Report Type: Spontaneous
  Country: US (occurrence: US)
  Receive Date: 20220812
  Receipt Date: 20220812
  Transmission Date: 20221027
  Serious: Yes (Life-Threatening, Hospitalization)
  Sender: FDA-Public Use
  Company Number: US-drreddys-LIT/USA/22/0153207

PATIENT
  Age: 4 Year
  Sex: Female

DRUGS (6)
  1. CLOPIDOGREL BISULFATE [Suspect]
     Active Substance: CLOPIDOGREL BISULFATE
     Indication: Platelet aggregation inhibition
     Dates: start: 201010
  2. MILRINONE [Concomitant]
     Active Substance: MILRINONE
     Indication: Prophylaxis
     Dosage: 0.5 MG/KG/MIN
  3. DOPAMINE [Concomitant]
     Active Substance: DOPAMINE HYDROCHLORIDE
     Indication: Prophylaxis
  4. WARFARIN [Concomitant]
     Active Substance: WARFARIN
     Indication: Product used for unknown indication
  5. enoxaparin sodium [enoxaparin] [Concomitant]
     Indication: Product used for unknown indication
     Dates: start: 201012
  6. HEPARIN SODIUM [Concomitant]
     Active Substance: HEPARIN SODIUM
     Indication: Product used for unknown indication

REACTIONS (6)
  - Drug ineffective [Unknown]
  - Enterococcal bacteraemia [Unknown]
  - Urinary tract infection bacterial [Unknown]
  - Clostridium difficile colitis [Unknown]
  - Staphylococcal bacteraemia [Unknown]
  - Renal failure [Unknown]
